FAERS Safety Report 5176427-X (Version None)
Quarter: 2006Q4

REPORT INFORMATION
  Report Type: 
  Country: None (occurrence: None)
  Receive Date: 20061215
  Receipt Date: 20061211
  Transmission Date: 20070319
  Serious: Yes (Other)
  Sender: FDA-Public Use
  Company Number: 2006UW27406

PATIENT
  Age: 87 Year
  Sex: Female
  Weight: 55.3 kg

DRUGS (4)
  1. SEROQUEL [Suspect]
     Route: 048
     Dates: start: 20050101
  2. NAMENDA [Concomitant]
  3. ARICEPT [Concomitant]
  4. ANTIDEPRESSANT [Concomitant]

REACTIONS (3)
  - APHASIA [None]
  - DEHYDRATION [None]
  - MOANING [None]
